FAERS Safety Report 18069369 (Version 2)
Quarter: 2020Q3

REPORT INFORMATION
  Report Type: Spontaneous
  Country: GB (occurrence: GB)
  Receive Date: 20200725
  Receipt Date: 20200801
  Transmission Date: 20201103
  Serious: Yes (Other)
  Sender: FDA-Public Use
  Company Number: GB-ASCEND THERAPEUTICS US, LLC-2087747

PATIENT
  Age: 51 Year
  Sex: Female
  Weight: 61 kg

DRUGS (3)
  1. ESTROGEL [Suspect]
     Active Substance: ESTRADIOL
     Indication: MENOPAUSAL SYMPTOMS
     Route: 062
     Dates: start: 20200615
  2. OESTRODOSE (ESTRADIOL) [Suspect]
     Active Substance: ESTRADIOL
     Route: 062
     Dates: start: 20200615
  3. ESTROGEL [Suspect]
     Active Substance: ESTRADIOL

REACTIONS (9)
  - Anxiety [Unknown]
  - Product substitution issue [Unknown]
  - Night sweats [Unknown]
  - Drug ineffective [Unknown]
  - Menopausal symptoms [Not Recovered/Not Resolved]
  - Hot flush [Unknown]
  - Formication [Unknown]
  - Arthralgia [Unknown]
  - Pruritus [Unknown]

NARRATIVE: CASE EVENT DATE: 20200617
